FAERS Safety Report 7560553-1 (Version None)
Quarter: 2011Q2

REPORT INFORMATION
  Report Type: 
  Country: None (occurrence: None)
  Receive Date: 20110614
  Receipt Date: 20110531
  Transmission Date: 20111010
  Serious: Yes (Hospitalization)
  Sender: FDA-Public Use
  Company Number: 2011MA006599

PATIENT
  Age: 35 Year
  Sex: Male

DRUGS (7)
  1. HYDROCHLORIDE [Concomitant]
  2. S-1 [Concomitant]
  3. NAPROXEN DELAYED-RELEASE TABLETS, 500 MG (PUREPAC)PUREPAC (NAPROXEN) [Suspect]
     Indication: PAIN
     Dosage: PO
     Route: 048
  4. GRANISETRON [Concomitant]
  5. LANSOPRAZOLE [Concomitant]
  6. DIPYRIDAMOLE [Concomitant]
  7. CISPLATIN [Concomitant]

REACTIONS (12)
  - DIARRHOEA [None]
  - SOMNOLENCE [None]
  - ABDOMINAL PAIN UPPER [None]
  - PYREXIA [None]
  - TENDERNESS [None]
  - STOMATITIS [None]
  - DECREASED APPETITE [None]
  - HAEMODIALYSIS [None]
  - RENAL FAILURE ACUTE [None]
  - NEUTROPHIL COUNT DECREASED [None]
  - PANCYTOPENIA [None]
  - DEHYDRATION [None]
